FAERS Safety Report 7908821-5 (Version None)
Quarter: 2011Q4

REPORT INFORMATION
  Report Type: 
  Country: None (occurrence: None)
  Receive Date: 20111111
  Receipt Date: 20111101
  Transmission Date: 20120403
  Serious: Yes (Hospitalization)
  Sender: FDA-Public Use
  Company Number: US-BAYER-2011-072242

PATIENT
  Age: 25 Year
  Sex: Female
  Weight: 70.748 kg

DRUGS (2)
  1. ACIDOPHILUS [Concomitant]
  2. YAZ [Suspect]
     Indication: CONTRACEPTION
     Dosage: UNK
     Dates: start: 20090122, end: 20090915

REACTIONS (8)
  - NAUSEA [None]
  - DYSPNOEA [None]
  - MUSCULOSKELETAL CHEST PAIN [None]
  - ANXIETY [None]
  - PULMONARY EMBOLISM [None]
  - CHEST PAIN [None]
  - ABDOMINAL PAIN [None]
  - DISCOMFORT [None]
